FAERS Safety Report 9437674 (Version 3)
Quarter: 2013Q3

REPORT INFORMATION
  Report Type: Report from Study
  Country: DE (occurrence: DE)
  Receive Date: 20130802
  Receipt Date: 20130805
  Transmission Date: 20140515
  Serious: Yes (Life-Threatening, Hospitalization, Disabling)
  Sender: FDA-Public Use
  Company Number: DE-ROCHE-1253563

PATIENT
  Age: 60 Year
  Sex: Female

DRUGS (2)
  1. VEMURAFENIB [Suspect]
     Indication: MALIGNANT MELANOMA
     Route: 048
     Dates: start: 20130501, end: 20130705
  2. VEMURAFENIB [Suspect]
     Route: 048
     Dates: start: 20130718

REACTIONS (1)
  - Cerebral haemorrhage [Recovered/Resolved]
